FAERS Safety Report 25915668 (Version 1)
Quarter: 2025Q4

REPORT INFORMATION
  Report Type: Spontaneous
  Country: US (occurrence: US)
  Receive Date: 20251013
  Receipt Date: 20251013
  Transmission Date: 20260118
  Serious: Yes (Hospitalization)
  Sender: ABBVIE
  Company Number: US-ABBVIE-6500409

PATIENT
  Age: 2 Year
  Sex: Female

DRUGS (1)
  1. LEVOTHYROXINE [Suspect]
     Active Substance: LEVOTHYROXINE
     Indication: Product used for unknown indication
     Dosage: DOSAGE: 175 MCG 175 MICROGRAMS (MCG) AT 0900
     Route: 048

REACTIONS (5)
  - Overdose [Unknown]
  - Sinus tachycardia [Unknown]
  - Vomiting [Unknown]
  - Thyroxine increased [Unknown]
  - Toxicity to various agents [Unknown]
